FAERS Safety Report 13859027 (Version 2)
Quarter: 2017Q3

REPORT INFORMATION
  Report Type: Report from Study
  Country: BE (occurrence: BE)
  Receive Date: 20170811
  Receipt Date: 20170902
  Transmission Date: 20171127
  Serious: Yes (Hospitalization, Other)
  Sender: FDA-Public Use
  Company Number: BE-AMGEN-BELSP2017083552

PATIENT
  Age: 77 Year
  Sex: Male
  Weight: 70 kg

DRUGS (20)
  1. PAMIDRONATE [Concomitant]
     Active Substance: PAMIDRONATE DISODIUM
     Dosage: 1 DF, (4 PER YEAR)
     Route: 042
  2. CARFILZOMIB [Suspect]
     Active Substance: CARFILZOMIB
     Indication: PLASMA CELL MYELOMA
     Dosage: 98/96 MG, DAY 1,2,8,9,15 AND 16
     Route: 042
     Dates: start: 20161013, end: 20161028
  3. DEXAMETHASONE. [Concomitant]
     Active Substance: DEXAMETHASONE
     Indication: PLASMA CELL MYELOMA
     Dosage: 20 MG, DAY 1,2, 8,9,15 AND 16
     Route: 048
     Dates: start: 20161013, end: 20161103
  4. CLEXANE [Concomitant]
     Active Substance: ENOXAPARIN SODIUM
     Dosage: 40 MG, QD 1X DAY, 8:00
     Route: 058
  5. FLAMINAL [Concomitant]
     Active Substance: SODIUM ALGINATE
     Dosage: 1 GEL ON THE SKIN LOCATION, 2X DAY, 8:00 AND 20:00
  6. DAFALGAN [Concomitant]
     Active Substance: ACETAMINOPHEN
     Dosage: 1 G, MORE IF THERE IS PAIN (MAXIMUM 4)
  7. DUROGESIC [Concomitant]
     Active Substance: FENTANYL
     Dosage: 100 MUG, DAILY
  8. OMEPRAZOLE. [Concomitant]
     Active Substance: OMEPRAZOLE
     Dosage: 40 MG, QD 1X DAY, 8:00
  9. TRANSDERM [Concomitant]
     Dosage: UNK, 1X EVERY THREE DAYS
  10. IBUPROFEN. [Concomitant]
     Active Substance: IBUPROFEN
     Dosage: UNK
  11. OMIC [Concomitant]
     Dosage: 0.4 MG, QD 1X DAY, 8:00
  12. ASAFLOW [Concomitant]
     Active Substance: ASPIRIN
     Dosage: 80 MG, QD 1 PER DAY
  13. STEOVIT D3 [Concomitant]
     Active Substance: CALCIUM CARBONATE\CHOLECALCIFEROL
     Dosage: 1000 MG, QD 1 TABLET (DAILY DOSE), 1X DAY, 20:00
  14. VERSATIS [Concomitant]
     Active Substance: LIDOCAINE
     Dosage: UNK
  15. COVERSYL [Concomitant]
     Active Substance: PERINDOPRIL
     Dosage: 2.5 MG, QD
     Dates: start: 20161110, end: 20161125
  16. QUININE SULFATE. [Concomitant]
     Active Substance: QUININE SULFATE
     Dosage: 325 MG, 8:00 MORE IF THERE ARE MUSCLE CRAMPS (MAXIMUM 2)
  17. ACYCLOVIR. [Concomitant]
     Active Substance: ACYCLOVIR
     Dosage: 800 MG, QD (2 PER DAY)
  18. BURINEX [Concomitant]
     Active Substance: BUMETANIDE
     Dosage: 2 MG, QD
  19. OXYNORM [Concomitant]
     Active Substance: OXYCODONE HYDROCHLORIDE
     Dosage: 10 MG, MORE IF THERE IS PAIN (MAXIMUM 6)
  20. PREVALON [Concomitant]
     Dosage: 1 DF, QD 1X DAY, 8:00

REACTIONS (3)
  - Cardiac failure [Recovered/Resolved]
  - Weight increased [Recovered/Resolved]
  - Fluid retention [Recovered/Resolved]

NARRATIVE: CASE EVENT DATE: 20161025
